FAERS Safety Report 15116410 (Version 1)
Quarter: 2018Q3

REPORT INFORMATION
  Report Type: Spontaneous
  Country: CN (occurrence: CN)
  Receive Date: 20180706
  Receipt Date: 20180706
  Transmission Date: 20181010
  Serious: Yes (Hospitalization)
  Sender: FDA-Public Use
  Company Number: CN-PURDUE PHARMA-GBR-2018-0057197

PATIENT
  Age: 66 Year
  Sex: Male
  Weight: 50 kg

DRUGS (1)
  1. MS CONTIN [Suspect]
     Active Substance: MORPHINE SULFATE
     Indication: ANALGESIC THERAPY
     Dosage: 30 MG, Q12H
     Route: 048
     Dates: start: 20180511, end: 20180513

REACTIONS (7)
  - Abnormal behaviour [Recovered/Resolved]
  - Depressed level of consciousness [Recovered/Resolved]
  - Language disorder [Recovered/Resolved]
  - Phobia [Recovered/Resolved]
  - Abdominal pain [Recovered/Resolved]
  - Restlessness [Recovered/Resolved]
  - Nervous system disorder [Recovered/Resolved]

NARRATIVE: CASE EVENT DATE: 20180513
